FAERS Safety Report 7061453-6 (Version None)
Quarter: 2010Q4

REPORT INFORMATION
  Report Type: 
  Country: None (occurrence: None)
  Receive Date: 20101026
  Receipt Date: 20101013
  Transmission Date: 20110411
  Serious: Yes (Other)
  Sender: FDA-Public Use
  Company Number: DE-ELI_LILLY_AND_COMPANY-DE200911001554

PATIENT
  Sex: Male
  Weight: 75 kg

DRUGS (2)
  1. ZYPADHERA [Suspect]
     Indication: SCHIZOPHRENIA
     Dosage: 210 MG, EVERY 2 WEEKS
     Dates: start: 20091020, end: 20091101
  2. VENLAFAXINE HCL [Concomitant]
     Indication: DEPRESSION
     Dosage: 300 MG, UNK
     Dates: start: 20090318

REACTIONS (3)
  - DISTURBANCE IN ATTENTION [None]
  - DIZZINESS [None]
  - ROAD TRAFFIC ACCIDENT [None]
